FAERS Safety Report 15832614 (Version 1)
Quarter: 2018Q4

REPORT INFORMATION
  Report Type: Spontaneous
  Country: US (occurrence: US)
  Receive Date: 20181219
  Receipt Date: 20181219
  Transmission Date: 20190205
  Serious: No
  Sender: FDA-Public Use
  Company Number: None

PATIENT
  Age: 49 Year
  Sex: Male

DRUGS (3)
  1. TREMFYA [Suspect]
     Active Substance: GUSELKUMAB
  2. BELVIQ [Concomitant]
     Active Substance: LORCASERIN HYDROCHLORIDE
  3. BETAMETHASONE KETOCONAZOLE [Concomitant]

REACTIONS (2)
  - Drug effect decreased [None]
  - Pruritus [None]

NARRATIVE: CASE EVENT DATE: 20181212
